FAERS Safety Report 14831184 (Version 2)
Quarter: 2018Q2

REPORT INFORMATION
  Report Type: Spontaneous
  Country: JP (occurrence: JP)
  Receive Date: 20180501
  Receipt Date: 20180613
  Transmission Date: 20180711
  Serious: Yes (Death, Life-Threatening, Hospitalization, Disabling, Other)
  Sender: FDA-Public Use
  Company Number: JP-009507513-1804JPN002968J

PATIENT
  Age: 80 Year
  Sex: Female
  Weight: 52 kg

DRUGS (14)
  1. TAKECAB [Concomitant]
     Active Substance: VONOPRAZAN FUMURATE
     Indication: GASTRIC ULCER
     Dosage: 10 MG, QD
     Route: 048
     Dates: end: 20180410
  2. BETAMETHASONE. [Concomitant]
     Active Substance: BETAMETHASONE
     Indication: DECREASED APPETITE
     Dosage: 4 MG, QD
     Route: 048
     Dates: end: 20180410
  3. NAIXAN [Concomitant]
     Active Substance: NAPROXEN SODIUM
     Indication: PAIN
     Dosage: 300 MG, BID
     Route: 048
     Dates: end: 20180410
  4. RANMARK [Concomitant]
     Active Substance: DENOSUMAB
     Route: 051
  5. NARUSUS [Concomitant]
     Indication: PAIN
     Dosage: 30 MG, QD
     Route: 048
     Dates: end: 20180406
  6. NARURAPID [Concomitant]
     Indication: PAIN
     Dosage: 3 MG, QD
     Route: 048
     Dates: end: 20180406
  7. CALFINA [Concomitant]
     Active Substance: ALFACALCIDOL
     Dosage: 1 MG, QD
     Route: 048
     Dates: end: 20180410
  8. LIXIANA [Concomitant]
     Active Substance: EDOXABAN TOSYLATE
     Indication: DEEP VEIN THROMBOSIS
     Dosage: 30 MG, QD
     Route: 048
     Dates: end: 20180410
  9. CALCIUM LACTATE [Concomitant]
     Active Substance: CALCIUM LACTATE
     Dosage: 1000 MG, BID
     Route: 048
     Dates: end: 20180410
  10. OXYCONTIN [Concomitant]
     Active Substance: OXYCODONE HYDROCHLORIDE
     Indication: PAIN
     Dosage: 40 MG, BID
     Route: 048
     Dates: end: 20180410
  11. KEYTRUDA [Suspect]
     Active Substance: PEMBROLIZUMAB
     Indication: LUNG ADENOCARCINOMA
     Dosage: 200 MG, Q3W
     Route: 041
     Dates: start: 20180223, end: 20180223
  12. MAGNESIUM OXIDE/PYRIDOXINE HYDROCHLORIDE [Concomitant]
     Indication: CONSTIPATION
     Dosage: 330 MG, QD
     Route: 048
     Dates: end: 20180410
  13. SENNOSIDE [Concomitant]
     Active Substance: SENNOSIDES
     Indication: CONSTIPATION
     Dosage: 12 MG, QD
     Route: 048
     Dates: end: 20180410
  14. OXINORM [Concomitant]
     Indication: PAIN
     Dosage: 15 MG, QD
     Route: 048
     Dates: end: 20180410

REACTIONS (2)
  - Synovitis [Unknown]
  - Interstitial lung disease [Fatal]

NARRATIVE: CASE EVENT DATE: 20180316
